FAERS Safety Report 19019158 (Version 4)
Quarter: 2021Q2

REPORT INFORMATION
  Report Type: Report from Study
  Country: US (occurrence: US)
  Receive Date: 20210316
  Receipt Date: 20210430
  Transmission Date: 20210717
  Serious: Yes (Hospitalization)
  Sender: FDA-Public Use
  Company Number: US-TEVA-2021-US-1889906

PATIENT
  Age: 69 Year
  Sex: Female
  Weight: 95.7 kg

DRUGS (14)
  1. LEUCOVURIN [Suspect]
     Active Substance: LEUCOVORIN
     Indication: NEOPLASM
     Dosage: 400 MG/M2,1 IN 2 WK
     Route: 042
     Dates: start: 20210204
  2. METOPROLOL SUCCINATE. [Concomitant]
     Active Substance: METOPROLOL SUCCINATE
     Indication: HYPERTENSION
     Dosage: 50 MILLIGRAM DAILY; 50 MG (50 MG,1 IN 1 D)
     Route: 048
     Dates: start: 20201008
  3. PANTOPRAZOLE [Concomitant]
     Active Substance: PANTOPRAZOLE
     Indication: GASTROOESOPHAGEAL REFLUX DISEASE
     Dosage: 80 MILLIGRAM DAILY; 80 MG (40 MG,2 IN 1 D)
     Route: 048
     Dates: start: 20201116
  4. FLUOROURACIL. [Suspect]
     Active Substance: FLUOROURACIL
     Dosage: 400 MG/M2,1 IN 2 WK
     Route: 040
     Dates: start: 20210204
  5. ABBV?621 [Suspect]
     Active Substance: EFTOZANERMIN ALFA
     Indication: NEOPLASM
     Dosage: DAILY DOSE: (3.75 MG/KG,1 IN 2 WK)
     Route: 042
     Dates: start: 20210204
  6. FLUOROURACIL. [Suspect]
     Active Substance: FLUOROURACIL
     Indication: NEOPLASM
     Dosage: (2400 MG/M2,1 IN 2 WK)
     Route: 042
     Dates: start: 20210204
  7. CHOLECALCIFEROL [Concomitant]
     Active Substance: CHOLECALCIFEROL
     Indication: VITAMIN SUPPLEMENTATION
     Dosage: 4000 MICROGRAM DAILY; 4000 MCG (4000 MCG,1 IN 1 D)
     Route: 048
     Dates: start: 20201216
  8. HYDROCHLOROTHIAZIDE. [Concomitant]
     Active Substance: HYDROCHLOROTHIAZIDE
     Indication: HYPERTENSION
     Dosage: 12.5 MILLIGRAM DAILY;
     Route: 048
     Dates: start: 20200222
  9. LOSARTAN. [Concomitant]
     Active Substance: LOSARTAN
     Indication: HYPERTENSION
     Dosage: 100 MILLIGRAM DAILY; 100 MG (100 MG,1 IN 1 D)
     Route: 048
     Dates: start: 20200818
  10. DEXAMETHASONE. [Concomitant]
     Active Substance: DEXAMETHASONE
     Indication: CHEMOTHERAPY SIDE EFFECT PROPHYLAXIS
     Dosage: EVERY TWO WEEKS PRIOR TO CHEMOTHERAPY (10 MG)
     Route: 042
     Dates: start: 20210204
  11. ELIQUIS [Concomitant]
     Active Substance: APIXABAN
     Indication: PULMONARY EMBOLISM
     Dosage: 10 MILLIGRAM DAILY;
     Route: 048
     Dates: start: 20201216
  12. PALONOSETRON. [Concomitant]
     Active Substance: PALONOSETRON HYDROCHLORIDE
     Indication: CHEMOTHERAPY SIDE EFFECT PROPHYLAXIS
     Dosage: FREQUENCY: EVERY 2 WEEKS PRIOR TO CHEMO (0.25 MG)
     Route: 040
     Dates: start: 20210204
  13. IRINOTECAN [Suspect]
     Active Substance: IRINOTECAN
     Indication: NEOPLASM
     Dosage: (180 MG/M2,1 IN 2 WK)
     Route: 042
     Dates: start: 20210204
  14. ACETAMINOPHEN. [Concomitant]
     Active Substance: ACETAMINOPHEN
     Indication: HEADACHE
     Dosage: (500 MG,AS REQUIRED)
     Route: 048
     Dates: start: 20210107

REACTIONS (4)
  - Cholelithiasis [Not Recovered/Not Resolved]
  - Vomiting [Not Recovered/Not Resolved]
  - Dehydration [Not Recovered/Not Resolved]
  - Nausea [Not Recovered/Not Resolved]

NARRATIVE: CASE EVENT DATE: 20210220
